FAERS Safety Report 6419002-9 (Version None)
Quarter: 2009Q4

REPORT INFORMATION
  Report Type: 
  Country: None (occurrence: None)
  Receive Date: 20091026
  Receipt Date: 20091015
  Transmission Date: 20100525
  Serious: No
  Sender: FDA-Public Use
  Company Number: 2009011537

PATIENT
  Age: 29 Year
  Sex: Female
  Weight: 78.0187 kg

DRUGS (2)
  1. FENTORA [Suspect]
     Indication: PANCREATIC DISORDER
     Dosage: (200 MCG),BU
     Route: 002
     Dates: start: 20091015
  2. HYDROCODONE/APAP (PARACETAMOL, DIHYDROCODEINE) [Concomitant]

REACTIONS (2)
  - DRUG PRESCRIBING ERROR [None]
  - INCORRECT DOSE ADMINISTERED [None]
